FAERS Safety Report 7928548-3 (Version None)
Quarter: 2011Q4

REPORT INFORMATION
  Report Type: 
  Country: None (occurrence: None)
  Receive Date: 20111118
  Receipt Date: 20111114
  Transmission Date: 20120403
  Serious: No
  Sender: FDA-Public Use
  Company Number: FR-BRISTOL-MYERS SQUIBB COMPANY-16152001

PATIENT
  Age: 26 Year
  Sex: Female

DRUGS (2)
  1. DEPAKOTE [Concomitant]
     Indication: BIPOLAR DISORDER
     Dosage: 500MG IS THE STRENGTH
     Route: 048
     Dates: start: 20090202
  2. ABILIFY [Suspect]
     Dosage: FOR 4 YEARS
     Route: 048

REACTIONS (1)
  - WEIGHT INCREASED [None]
